FAERS Safety Report 20742124 (Version 3)
Quarter: 2022Q2

REPORT INFORMATION
  Report Type: Spontaneous
  Country: IL (occurrence: IL)
  Receive Date: 20220423
  Receipt Date: 20220511
  Transmission Date: 20220721
  Serious: Yes (Death)
  Sender: FDA-Public Use
  Company Number: IL-CHIESI-2022CHF01899

PATIENT
  Sex: Male
  Weight: .87 kg

DRUGS (1)
  1. CUROSURF [Suspect]
     Active Substance: PORACTANT ALFA
     Indication: Neonatal respiratory distress syndrome
     Dosage: 5 DOSAGE FORM

REACTIONS (5)
  - Respiratory failure [Fatal]
  - Drug ineffective [Fatal]
  - Overdose [Unknown]
  - Off label use [Unknown]
  - Product complaint [Recovered/Resolved]
